FAERS Safety Report 8374370-6 (Version None)
Quarter: 2012Q2

REPORT INFORMATION
  Report Type: 
  Country: None (occurrence: None)
  Receive Date: 20120521
  Receipt Date: 20120515
  Transmission Date: 20120825
  Serious: Yes (Other)
  Sender: FDA-Public Use
  Company Number: US-BAYER-2012-023032

PATIENT
  Age: 24 Year
  Sex: Female
  Weight: 84 kg

DRUGS (3)
  1. DROSPIRENONE AND ETHINYL ESTRADIOL [Suspect]
     Indication: OVARIAN CYST
     Dosage: UNK
     Dates: start: 20080101, end: 20100701
  2. YASMIN [Suspect]
     Indication: OVARIAN CYST
     Dosage: UNK
     Dates: start: 20020601, end: 20070901
  3. YAZ [Suspect]
     Indication: OVARIAN CYST
     Dosage: UNK
     Dates: start: 20070901, end: 20071201

REACTIONS (9)
  - CHOLECYSTITIS [None]
  - FEAR OF DEATH [None]
  - EMOTIONAL DISTRESS [None]
  - DEPRESSION [None]
  - CHOLELITHIASIS [None]
  - NERVOUSNESS [None]
  - PAIN [None]
  - NAUSEA [None]
  - VOMITING [None]
